FAERS Safety Report 7531396-X (Version None)
Quarter: 2011Q2

REPORT INFORMATION
  Report Type: 
  Country: None (occurrence: None)
  Receive Date: 20110608
  Receipt Date: 20110525
  Transmission Date: 20111010
  Serious: Yes (Hospitalization)
  Sender: FDA-Public Use
  Company Number: PHHY2011TW45792

PATIENT
  Age: 18 Year
  Sex: Male

DRUGS (4)
  1. TESTOSTERONE CIPIONATE [Concomitant]
     Indication: SECONDARY HYPOGONADISM
     Dosage: 200 MG, EVERY 3 TO 4 WEEKS
     Route: 030
  2. DEFERASIROX [Suspect]
     Indication: IRON OVERLOAD
     Dosage: 1000 MG, UNK
     Route: 048
  3. LEVOTHYROXINE SODIUM [Concomitant]
     Indication: HYPOTHYROIDISM
     Dosage: 25 MG, DAY
     Route: 048
  4. DEFERASIROX [Suspect]
     Dosage: 1375 MG, UNK
     Route: 048

REACTIONS (32)
  - ACUTE PRERENAL FAILURE [None]
  - THROMBOCYTOPENIA [None]
  - BRAIN OEDEMA [None]
  - DIARRHOEA [None]
  - HEPATIC FUNCTION ABNORMAL [None]
  - HAEMATEMESIS [None]
  - RESPIRATORY FAILURE [None]
  - HYPOCALCAEMIA [None]
  - GLYCOSURIA [None]
  - HYPOURICAEMIA [None]
  - GASTROINTESTINAL HAEMORRHAGE [None]
  - BACK PAIN [None]
  - HYPOGLYCAEMIA [None]
  - HYPOPHOSPHATAEMIA [None]
  - RENAL TUBULAR ACIDOSIS [None]
  - PYREXIA [None]
  - DISSEMINATED INTRAVASCULAR COAGULATION [None]
  - COUGH [None]
  - PNEUMOTHORAX [None]
  - METABOLIC ACIDOSIS [None]
  - LOSS OF CONSCIOUSNESS [None]
  - INTRACRANIAL PRESSURE INCREASED [None]
  - DYSPNOEA [None]
  - DISCOMFORT [None]
  - HYPOKALAEMIA [None]
  - FANCONI SYNDROME ACQUIRED [None]
  - SYSTEMIC INFLAMMATORY RESPONSE SYNDROME [None]
  - PALPITATIONS [None]
  - LETHARGY [None]
  - HYPONATRAEMIA [None]
  - PROTEINURIA [None]
  - RENAL INJURY [None]
